FAERS Safety Report 7344514-3 (Version None)
Quarter: 2011Q1

REPORT INFORMATION
  Report Type: 
  Country: None (occurrence: None)
  Receive Date: 20110307
  Receipt Date: 20110307
  Transmission Date: 20110831
  Serious: No
  Sender: FDA-Public Use
  Company Number: None

PATIENT
  Sex: Female
  Weight: 67.1324 kg

DRUGS (1)
  1. CARVEDILOL [Suspect]
     Indication: HYPERTENSION
     Dosage: COREG 12.5 BID P.O.
     Route: 048
     Dates: start: 20080101

REACTIONS (3)
  - PRODUCT FORMULATION ISSUE [None]
  - HYPOTENSION [None]
  - DIZZINESS [None]
